FAERS Safety Report 4615153-X (Version None)
Quarter: 2005Q1

REPORT INFORMATION
  Report Type: 
  Country: None (occurrence: None)
  Receive Date: 20050322
  Receipt Date: 20041119
  Transmission Date: 20050727
  Serious: Yes (Hospitalization)
  Sender: FDA-Public Use
  Company Number: FR-GLAXOSMITHKLINE-B0357672A

PATIENT
  Age: 79 Year
  Sex: Female

DRUGS (7)
  1. DEROXAT [Suspect]
     Indication: DEPRESSION
     Route: 048
     Dates: start: 20040529, end: 20040610
  2. XANAX [Suspect]
     Route: 048
     Dates: start: 20040529, end: 20040610
  3. LAROXYL [Suspect]
     Indication: DEPRESSION
     Route: 048
     Dates: end: 20040525
  4. ZYPREXA [Suspect]
     Route: 048
     Dates: start: 20040419, end: 20040525
  5. ARICEPT [Suspect]
     Route: 048
     Dates: end: 20040525
  6. ZESTORETIC [Suspect]
     Indication: ESSENTIAL HYPERTENSION
     Route: 048
     Dates: end: 20040610
  7. PANTOPRAZOLE SODIUM [Suspect]
     Route: 048
     Dates: end: 20040610

REACTIONS (5)
  - CATATONIA [None]
  - DISTURBANCE IN ATTENTION [None]
  - HYPOKALAEMIA [None]
  - HYPONATRAEMIA [None]
  - IMPAIRED SELF-CARE [None]
